FAERS Safety Report 23029091 (Version 1)
Quarter: 2023Q4

REPORT INFORMATION
  Report Type: Spontaneous
  Country: US (occurrence: None)
  Receive Date: 20231002
  Receipt Date: 20231002
  Transmission Date: 20240109
  Serious: No
  Sender: FDA-Public Use
  Company Number: None

PATIENT
  Age: 66 Year
  Sex: Female
  Weight: 54 kg

DRUGS (11)
  1. COMPLEMENTARY SUPPLEMENT, OTHER [Suspect]
     Active Substance: COMPLEMENTARY SUPPLEMENT, OTHER
     Indication: Dyspnoea
     Dosage: OTHER STRENGTH : SPRAY DROPLETS;?OTHER QUANTITY : 2 SPRAY(S);?FREQUENCY : AS NEEDED;?
     Route: 055
     Dates: start: 20230801, end: 20230810
  2. Vyzulta gtts [Concomitant]
  3. CALCIUM [Concomitant]
     Active Substance: CALCIUM
  4. MAGNESIUM [Concomitant]
     Active Substance: MAGNESIUM
  5. Vits D [Concomitant]
  6. Vits K2 [Concomitant]
  7. VITAMIN B COMPLEX [Concomitant]
     Active Substance: CYANOCOBALAMIN\DEXPANTHENOL\NIACINAMIDE\PYRIDOXINE HYDROCHLORIDE\RIBOFLAVIN 5^-PHOSPHATE SODIUM\THIA
  8. VITAMIN C [Concomitant]
     Active Substance: ASCORBIC ACID
  9. EPA/DHA [Concomitant]
  10. CURCUMIN [Concomitant]
     Active Substance: CURCUMIN
  11. ZINC [Concomitant]
     Active Substance: PYRITHIONE ZINC\ZINC\ZINC CHLORIDE

REACTIONS (2)
  - Ear congestion [None]
  - Hypoacusis [None]

NARRATIVE: CASE EVENT DATE: 20230809
